FAERS Safety Report 7218886-4 (Version None)
Quarter: 2011Q1

REPORT INFORMATION
  Report Type: 
  Country: None (occurrence: None)
  Receive Date: 20110110
  Receipt Date: 20110103
  Transmission Date: 20110831
  Serious: Yes (Hospitalization)
  Sender: FDA-Public Use
  Company Number: US-RB-015949-10

PATIENT
  Age: 19 Year
  Sex: Male

DRUGS (2)
  1. SUBOXONE [Suspect]
     Indication: PRODUCT USED FOR UNKNOWN INDICATION
     Dosage: SUBLINGUAL FILM- DOSING INFORMATION UNKNOWN
     Route: 065
  2. SUBOXONE [Suspect]
     Indication: PRODUCT USED FOR UNKNOWN INDICATION
     Dosage: DOSAGE UNKNOWN AT THIS TIME.
     Route: 065

REACTIONS (9)
  - DRUG WITHDRAWAL SYNDROME [None]
  - INSOMNIA [None]
  - DRUG DEPENDENCE [None]
  - BACK PAIN [None]
  - SUBSTANCE ABUSE [None]
  - OSTEITIS [None]
  - OSTEOMYELITIS [None]
  - STRESS [None]
  - INTENTIONAL DRUG MISUSE [None]
